FAERS Safety Report 16290310 (Version 7)
Quarter: 2023Q4

REPORT INFORMATION
  Report Type: Other
  Country: DE (occurrence: None)
  Receive Date: 20190509
  Receipt Date: 20231127
  Transmission Date: 20240110
  Serious: No
  Sender: FDA-Public Use
  Company Number: DE-ROCHE-2315087

PATIENT
  Age: 41 Year
  Sex: Female

DRUGS (6)
  1. OCREVUS [Suspect]
     Active Substance: OCRELIZUMAB
     Indication: Relapsing-remitting multiple sclerosis
     Dosage: 600MG IN 182 DAYS.
     Route: 042
     Dates: start: 20190429
  2. OCREVUS [Suspect]
     Active Substance: OCRELIZUMAB
     Dosage: THEN 600 MG EVERY 6 MONTHS
     Route: 042
     Dates: start: 20190513
  3. OCREVUS [Suspect]
     Active Substance: OCRELIZUMAB
     Route: 042
     Dates: start: 20210505
  4. CORTISONE [Suspect]
     Active Substance: CORTISONE
     Indication: Premedication
     Route: 065
  5. COMIRNATY (TOZINAMERAN) [Suspect]
     Active Substance: TOZINAMERAN
     Indication: Product used for unknown indication
     Route: 065
  6. CANDESARTAN [Concomitant]
     Active Substance: CANDESARTAN

REACTIONS (10)
  - Dizziness [Recovered/Resolved]
  - Nasopharyngitis [Recovered/Resolved]
  - Lymphadenopathy [Recovered/Resolved]
  - Limb discomfort [Recovered/Resolved]
  - Somnolence [Recovered/Resolved]
  - Alopecia [Recovered/Resolved]
  - Fatigue [Recovering/Resolving]
  - Asthenia [Recovered/Resolved]
  - Influenza [Recovered/Resolved]
  - Vaccination site pain [Recovered/Resolved]

NARRATIVE: CASE EVENT DATE: 20190429
